FAERS Safety Report 8857678 (Version 2)
Quarter: 2012Q4

REPORT INFORMATION
  Report Type: 
  Country: US (occurrence: US)
  Receive Date: 20121024
  Receipt Date: 20121212
  Transmission Date: 20130627
  Serious: Yes (Other)
  Sender: FDA-Public Use
  Company Number: US-PFIZER INC-2012263533

PATIENT
  Sex: Female

DRUGS (1)
  1. TIKOSYN [Suspect]
     Indication: ARRHYTHMIA
     Dosage: UNK

REACTIONS (3)
  - Pulmonary hypertension [Unknown]
  - Cardiac failure congestive [Unknown]
  - Pain [Unknown]
